FAERS Safety Report 11647886 (Version 1)
Quarter: 2015Q4

REPORT INFORMATION
  Report Type: Spontaneous
  Country: GR (occurrence: GR)
  Receive Date: 20151021
  Receipt Date: 20151021
  Transmission Date: 20160304
  Serious: Yes (Life-Threatening, Hospitalization, Other)
  Sender: FDA-Public Use
  Company Number: GR-WATSON-2015-10862

PATIENT
  Age: 74 Year
  Sex: Male

DRUGS (2)
  1. FENTANYL. [Suspect]
     Active Substance: FENTANYL
     Indication: BREAKTHROUGH PAIN
     Dosage: 75 ?G, 3/WEEK( EVERY 72
     Route: 062
  2. TRAMADOL (UNKNOWN) [Suspect]
     Active Substance: TRAMADOL
     Indication: BREAKTHROUGH PAIN
     Dosage: 50 MG, BID
     Route: 065

REACTIONS (6)
  - Respiratory failure [Recovered/Resolved with Sequelae]
  - Hypercapnia [Recovering/Resolving]
  - Depressed level of consciousness [Recovered/Resolved]
  - Respiratory acidosis [Recovering/Resolving]
  - Self-medication [Unknown]
  - Toxicity to various agents [Recovered/Resolved with Sequelae]
